FAERS Safety Report 9355679 (Version 1)
Quarter: 2013Q2

REPORT INFORMATION
  Report Type: Spontaneous
  Country: US (occurrence: US)
  Receive Date: 20130619
  Receipt Date: 20130619
  Transmission Date: 20140414
  Serious: No
  Sender: FDA-Public Use
  Company Number: US-ASTRAZENECA-2013SE42257

PATIENT
  Age: 45 Year
  Sex: Female
  Weight: 85.3 kg

DRUGS (5)
  1. SEROQUEL [Suspect]
     Indication: BIPOLAR DISORDER
     Route: 048
     Dates: start: 2012, end: 20130228
  2. SEROQUEL [Suspect]
     Indication: BIPOLAR DISORDER
     Route: 048
  3. LITHIUM [Concomitant]
     Indication: MANIA
     Dates: start: 20130605
  4. GEODON [Concomitant]
     Indication: AFFECTIVE DISORDER
  5. TRAZADONE [Concomitant]
     Indication: SLEEP DISORDER
     Dates: start: 201304

REACTIONS (6)
  - Disorientation [Unknown]
  - Feeling abnormal [Unknown]
  - Confusional state [Unknown]
  - Dysarthria [Unknown]
  - Weight increased [Unknown]
  - Intentional drug misuse [Unknown]
